FAERS Safety Report 8353526-2 (Version None)
Quarter: 2012Q2

REPORT INFORMATION
  Report Type: 
  Country: None (occurrence: None)
  Receive Date: 20120511
  Receipt Date: 20110507
  Transmission Date: 20120825
  Serious: No
  Sender: FDA-Public Use
  Company Number: US-GLAXOSMITHKLINE-A0927231A

PATIENT
  Age: 54 Year
  Sex: Female
  Weight: 83.5 kg

DRUGS (15)
  1. FASLODEX [Concomitant]
  2. VITAMIN B-12 [Concomitant]
  3. DECADRON [Concomitant]
  4. JANUVIA [Concomitant]
  5. CARVEDILOL [Concomitant]
  6. ZOFRAN [Concomitant]
  7. GLIPIZIDE [Concomitant]
  8. AVASTIN [Concomitant]
  9. LISINOPRIL [Concomitant]
  10. METFORMIN HCL [Concomitant]
  11. LEVOTHYROXINE SODIUM [Suspect]
     Indication: PRODUCT USED FOR UNKNOWN INDICATION
     Route: 065
  12. TAXOL [Concomitant]
  13. FEMARA [Concomitant]
  14. TYKERB [Suspect]
     Indication: BREAST CANCER
     Dosage: 1250MG PER DAY
     Route: 048
     Dates: start: 20110426
  15. ZANTAC [Concomitant]

REACTIONS (13)
  - DIARRHOEA [None]
  - NAUSEA [None]
  - RASH [None]
  - SOMNOLENCE [None]
  - CONSTIPATION [None]
  - INSOMNIA [None]
  - NASOPHARYNGITIS [None]
  - HEADACHE [None]
  - EPISTAXIS [None]
  - FATIGUE [None]
  - ILL-DEFINED DISORDER [None]
  - VOMITING [None]
  - GINGIVAL BLEEDING [None]
